FAERS Safety Report 16132289 (Version 1)
Quarter: 2019Q2

REPORT INFORMATION
  Report Type: Spontaneous
  Country: US (occurrence: US)
  Receive Date: 20190328
  Receipt Date: 20190328
  Transmission Date: 20190711
  Serious: Yes (Hospitalization)
  Sender: FDA-Public Use
  Company Number: None

PATIENT
  Age: 58 Year
  Sex: Female

DRUGS (12)
  1. ACAMPRO [Concomitant]
  2. CARAFATE [Concomitant]
     Active Substance: SUCRALFATE
  3. OLANZAPINE. [Concomitant]
     Active Substance: OLANZAPINE
  4. DEXAMETHASON [Concomitant]
     Active Substance: DEXAMETHASONE
  5. MONTELUKAST [Concomitant]
     Active Substance: MONTELUKAST SODIUM
  6. GABAPENTIN. [Concomitant]
     Active Substance: GABAPENTIN
  7. ARNUITY ELLIPTA [Concomitant]
     Active Substance: FLUTICASONE FUROATE
  8. FLUTICASONE. [Concomitant]
     Active Substance: FLUTICASONE
  9. AMITRIPTYLIN [Concomitant]
     Active Substance: AMITRIPTYLINE
  10. PROAIR HFA [Concomitant]
     Active Substance: ALBUTEROL SULFATE
  11. PROCHLORPER [Concomitant]
  12. APREPITANT. [Suspect]
     Active Substance: APREPITANT
     Indication: VAGINAL CANCER
     Dosage: ?          OTHER FREQUENCY:125MG DAY 1;?
     Route: 048

REACTIONS (3)
  - Viral infection [None]
  - Infection [None]
  - Pyrexia [None]

NARRATIVE: CASE EVENT DATE: 20190326
